FAERS Safety Report 14342672 (Version 1)
Quarter: 2018Q1

REPORT INFORMATION
  Report Type: Spontaneous
  Country: ES (occurrence: ES)
  Receive Date: 20180102
  Receipt Date: 20180102
  Transmission Date: 20180509
  Serious: Yes (Other)
  Sender: FDA-Public Use
  Company Number: ES-BRACCO-2017ES05946

PATIENT
  Sex: Male

DRUGS (2)
  1. SONOVUE [Suspect]
     Active Substance: SULFUR HEXAFLUORIDE
     Indication: STRESS ECHOCARDIOGRAM
     Dosage: 3.7 ML, SINGLE
     Route: 042
     Dates: start: 20171218, end: 20171218
  2. ATROPINE. [Suspect]
     Active Substance: ATROPINE
     Indication: STRESS ECHOCARDIOGRAM
     Dosage: UNK
     Dates: start: 20171218, end: 20171218

REACTIONS (3)
  - Presyncope [Recovered/Resolved]
  - Pain in extremity [Recovered/Resolved]
  - Blood pressure decreased [Recovered/Resolved]

NARRATIVE: CASE EVENT DATE: 20171218
